FAERS Safety Report 6764728-0 (Version None)
Quarter: 2010Q2

REPORT INFORMATION
  Report Type: 
  Country: None (occurrence: None)
  Receive Date: 20100610
  Receipt Date: 20100528
  Transmission Date: 20101027
  Serious: Yes (Life-Threatening, Hospitalization)
  Sender: FDA-Public Use
  Company Number: DE-MYLANLABS-2009S1004378

PATIENT
  Age: 47 Year
  Sex: Female

DRUGS (2)
  1. AZATHIOPRINE [Suspect]
     Indication: GRANULOMA
     Route: 048
     Dates: start: 20080101, end: 20081030
  2. URBASON [Interacting]
     Indication: GRANULOMA
     Route: 048
     Dates: start: 20030101

REACTIONS (2)
  - CYTOMEGALOVIRUS HEPATITIS [None]
  - DRUG INTERACTION [None]
